FAERS Safety Report 7463513-4 (Version None)
Quarter: 2011Q2

REPORT INFORMATION
  Report Type: 
  Country: None (occurrence: None)
  Receive Date: 20110506
  Receipt Date: 20110426
  Transmission Date: 20111010
  Serious: Yes (Hospitalization)
  Sender: FDA-Public Use
  Company Number: PHHY2011US35748

PATIENT
  Age: 84 Year
  Sex: Female

DRUGS (6)
  1. BENICAR HCT [Concomitant]
  2. AMLODIPINE BESYLATE [Concomitant]
  3. SPIRONOLACTONE [Concomitant]
  4. VITAMIN B-12 [Concomitant]
  5. TEKTURNA [Suspect]
     Indication: HYPERTENSION
     Dosage: 150 MG, QD
     Route: 048
     Dates: start: 20110411, end: 20110413
  6. METOPROLOL SUCCINATE [Concomitant]

REACTIONS (3)
  - HAEMORRHAGE [None]
  - FAECES DISCOLOURED [None]
  - DIZZINESS [None]
